FAERS Safety Report 24719914 (Version 6)
Quarter: 2025Q4

REPORT INFORMATION
  Report Type: Spontaneous
  Country: JP (occurrence: JP)
  Receive Date: 20241211
  Receipt Date: 20251007
  Transmission Date: 20260118
  Serious: Yes (Other)
  Sender: GLAXOSMITHKLINE
  Company Number: JP-GLAXOSMITHKLINE INC-JP2024151607

PATIENT
  Age: 4 Month
  Sex: Male

DRUGS (5)
  1. BENLYSTA [Suspect]
     Active Substance: BELIMUMAB
     Indication: Systemic lupus erythematosus
     Dosage: UNK
  2. IMURAN [Suspect]
     Active Substance: AZATHIOPRINE
     Dosage: 100 MG, QD
  3. MEDROL [Suspect]
     Active Substance: METHYLPREDNISOLONE
     Dosage: 2 MG, QD
  4. PREDNISOLONE [Suspect]
     Active Substance: PREDNISOLONE
     Dosage: 2 MG, QD
  5. PROGRAF [Suspect]
     Active Substance: TACROLIMUS
     Dosage: UNK

REACTIONS (7)
  - Immunodeficiency [Unknown]
  - Immunosuppression [Unknown]
  - Immunoglobulins abnormal [Not Recovered/Not Resolved]
  - Premature baby [Unknown]
  - Respiratory disorder [Unknown]
  - Investigation abnormal [Recovering/Resolving]
  - Foetal exposure during pregnancy [Unknown]
